FAERS Safety Report 10662147 (Version 3)
Quarter: 2015Q1

REPORT INFORMATION
  Report Type: Spontaneous
  Country: US (occurrence: US)
  Receive Date: 20141218
  Receipt Date: 20150325
  Transmission Date: 20150720
  Serious: Yes (Hospitalization)
  Sender: FDA-Public Use
  Company Number: US-ACTELION-A-NJ2014-109617

PATIENT
  Age: 57 Year
  Sex: Male
  Weight: 110.2 kg

DRUGS (11)
  1. VELETRI [Suspect]
     Active Substance: EPOPROSTENOL
     Indication: PULMONARY ARTERIAL HYPERTENSION
     Dosage: 21 NG/KG, PER MIN
     Route: 042
     Dates: start: 20140722, end: 201411
  2. FUROSEMIDE. [Concomitant]
     Active Substance: FUROSEMIDE
     Dosage: 40 MG, BID
  3. POTASSIUM CHLORIDE. [Concomitant]
     Active Substance: POTASSIUM CHLORIDE
     Dosage: 25 MEQ, TID
  4. INSPRA [Concomitant]
     Active Substance: EPLERENONE
  5. MORPHINE SULFATE. [Concomitant]
     Active Substance: MORPHINE SULFATE
     Dosage: 15 MG, QD
  6. NADOLOL. [Concomitant]
     Active Substance: NADOLOL
  7. RIFAXIMIN [Concomitant]
     Active Substance: RIFAXIMIN
  8. ZYRTEC [Concomitant]
     Active Substance: CETIRIZINE HYDROCHLORIDE
  9. LACTULOSE. [Concomitant]
     Active Substance: LACTULOSE
     Dosage: 1 UNK, TID
  10. OMEPRAZOLE. [Concomitant]
     Active Substance: OMEPRAZOLE
     Dosage: 20 MG, UNK
  11. AMITRIPTYLINE [Concomitant]
     Active Substance: AMITRIPTYLINE
     Dosage: 100 MG, QD

REACTIONS (14)
  - Sputum discoloured [Unknown]
  - Oropharyngeal pain [Unknown]
  - Chest pain [Unknown]
  - Arthralgia [Unknown]
  - Epistaxis [Unknown]
  - Productive cough [Unknown]
  - Joint swelling [Unknown]
  - Acute kidney injury [Recovering/Resolving]
  - Dialysis [Recovering/Resolving]
  - Abdominal pain [Unknown]
  - Nasal congestion [Unknown]
  - Palpitations [Unknown]
  - Metabolic encephalopathy [Recovered/Resolved]
  - Decreased appetite [Unknown]

NARRATIVE: CASE EVENT DATE: 20141205
